FAERS Safety Report 17064161 (Version 1)
Quarter: 2019Q4

REPORT INFORMATION
  Report Type: Spontaneous
  Country: US (occurrence: US)
  Receive Date: 20191024
  Receipt Date: 20191024
  Transmission Date: 20200122
  Serious: No
  Sender: FDA-Public Use
  Company Number: None

PATIENT
  Age: 52 Year
  Sex: Male

DRUGS (1)
  1. GLATIRAMER 40MG PFS INJ  (12/BOX) [Suspect]
     Active Substance: GLATIRAMER
     Route: 058
     Dates: start: 201908

REACTIONS (6)
  - Hyperhidrosis [None]
  - Dyspnoea [None]
  - Chest discomfort [None]
  - Anxiety [None]
  - Back pain [None]
  - Palpitations [None]

NARRATIVE: CASE EVENT DATE: 20191023
